FAERS Safety Report 7630206-X (Version None)
Quarter: 2011Q3

REPORT INFORMATION
  Report Type: 
  Country: None (occurrence: None)
  Receive Date: 20110722
  Receipt Date: 20110715
  Transmission Date: 20111222
  Serious: Yes (Life-Threatening, Hospitalization)
  Sender: FDA-Public Use
  Company Number: US-BAYER-2011-002757

PATIENT
  Age: 41 Year
  Sex: Female
  Weight: 74.83 kg

DRUGS (19)
  1. DEXAMETHASONE [Concomitant]
  2. FLUOXETINE [Concomitant]
  3. NITROFURANTOIN [Concomitant]
  4. AMBIEN [Concomitant]
  5. PROMETHAZINE [Concomitant]
  6. FLUCONAZOLE [Concomitant]
  7. PROCHLORPERAZINE [Concomitant]
  8. YAZ [Suspect]
     Indication: CONTRACEPTION
     Dosage: UNK
     Dates: start: 20080901, end: 20090101
  9. SERTRALINE HYDROCHLORIDE [Concomitant]
     Indication: ANXIETY
     Dosage: UNK
     Dates: start: 20081012, end: 20090901
  10. ONDANSETRON [Concomitant]
  11. ACYCLOVIR ALPHARMA [ACICLOVIR SODIUM] [Concomitant]
  12. CIPROFLOXACIN [Concomitant]
  13. ZOLPIDEM [Concomitant]
  14. AZITHROMYCIN [Concomitant]
  15. HYDROCODONE BITARTRATE [Concomitant]
  16. LORAZEPAM [Concomitant]
     Indication: ANXIETY
     Dosage: UNK UNK, QD
     Dates: start: 20081012
  17. KLOR-CON [Concomitant]
     Indication: BLOOD POTASSIUM DECREASED
  18. NAPROXEN [Concomitant]
  19. METFORMIN HCL [Concomitant]
     Indication: DIABETES MELLITUS

REACTIONS (6)
  - FATIGUE [None]
  - CHOLECYSTITIS CHRONIC [None]
  - PAIN [None]
  - GALLBLADDER NON-FUNCTIONING [None]
  - EMOTIONAL DISTRESS [None]
  - ANXIETY [None]
